FAERS Safety Report 5398348-X (Version None)
Quarter: 2007Q3

REPORT INFORMATION
  Report Type: 
  Country: None (occurrence: None)
  Receive Date: 20070726
  Receipt Date: 20070525
  Transmission Date: 20080115
  Serious: Yes (Other)
  Sender: FDA-Public Use
  Company Number: US-AMGEN-US226606

PATIENT
  Sex: Male
  Weight: 90.8 kg

DRUGS (3)
  1. PROCRIT [Suspect]
     Indication: RENAL FAILURE CHRONIC
     Route: 058
     Dates: start: 20070510
  2. DILANTIN KAPSEAL [Concomitant]
  3. UNKNOWN [Concomitant]
     Indication: RENAL FAILURE CHRONIC

REACTIONS (2)
  - CONVULSION [None]
  - DYSARTHRIA [None]
